FAERS Safety Report 24739866 (Version 2)
Quarter: 2025Q1

REPORT INFORMATION
  Report Type: Spontaneous
  Country: MY (occurrence: MY)
  Receive Date: 20241216
  Receipt Date: 20250107
  Transmission Date: 20250409
  Serious: Yes (Life-Threatening, Hospitalization, Other)
  Sender: MERCK
  Company Number: MY-009507513-2412MYS005543

PATIENT
  Age: 49 Year
  Sex: Female

DRUGS (7)
  1. KEYTRUDA [Suspect]
     Active Substance: PEMBROLIZUMAB
     Dates: start: 20240903, end: 20240903
  2. KEYTRUDA [Suspect]
     Active Substance: PEMBROLIZUMAB
     Dates: start: 20241001, end: 20241001
  3. PACLITAXEL [Suspect]
     Active Substance: PACLITAXEL
     Indication: Inflammation
     Dates: start: 20240903, end: 20240903
  4. PACLITAXEL [Suspect]
     Active Substance: PACLITAXEL
     Dates: start: 20241001, end: 20241001
  5. PACLITAXEL [Suspect]
     Active Substance: PACLITAXEL
     Dates: start: 20241027, end: 20241027
  6. CARBOPLATIN [Suspect]
     Active Substance: CARBOPLATIN
     Dates: start: 20240903, end: 20240903
  7. CARBOPLATIN [Suspect]
     Active Substance: CARBOPLATIN
     Dates: start: 20241001, end: 20241001

REACTIONS (12)
  - Cyanosis [Recovered/Resolved]
  - Rales [Recovered/Resolved]
  - Salivary hypersecretion [Recovered/Resolved]
  - Hypotension [Recovered/Resolved]
  - Pallor [Recovered/Resolved]
  - Infusion related reaction [Recovered/Resolved]
  - Hyperhidrosis [Recovered/Resolved]
  - Loss of consciousness [Recovered/Resolved]
  - Febrile neutropenia [Recovered/Resolved]
  - Urticaria [Recovered/Resolved]
  - Pruritus [Recovered/Resolved]
  - Off label use [Unknown]

NARRATIVE: CASE EVENT DATE: 20240903
